FAERS Safety Report 17708223 (Version 2)
Quarter: 2020Q2

REPORT INFORMATION
  Report Type: Spontaneous
  Country: US (occurrence: US)
  Receive Date: 20200425
  Receipt Date: 20200521
  Transmission Date: 20200714
  Serious: No
  Sender: FDA-Public Use
  Company Number: US-ASTRAZENECA-2020SE55104

PATIENT
  Age: 12683 Day
  Sex: Male
  Weight: 104.3 kg

DRUGS (1)
  1. BYDUREON BCISE [Suspect]
     Active Substance: EXENATIDE
     Indication: TYPE 2 DIABETES MELLITUS
     Route: 058
     Dates: start: 2019

REACTIONS (5)
  - Injection site injury [Not Recovered/Not Resolved]
  - Device use issue [Recovered/Resolved]
  - Device leakage [Unknown]
  - Incorrect dose administered by device [Not Recovered/Not Resolved]
  - Drug delivery system issue [Unknown]

NARRATIVE: CASE EVENT DATE: 20200418
